FAERS Safety Report 7978911 (Version 5)
Quarter: 2016Q1

REPORT INFORMATION
  Report Type: Report from Study
  Country: US (occurrence: US)
  Receive Date: 20110607
  Receipt Date: 20160219
  Transmission Date: 20160526
  Serious: Yes (Hospitalization)
  Sender: FDA-Public Use
  Company Number: US-JNJFOC-20110600233

PATIENT
  Age: 3 Year
  Sex: Female
  Weight: 12.7 kg

DRUGS (7)
  1. PREVACID [Concomitant]
     Active Substance: LANSOPRAZOLE
  2. ALBUTEROL. [Concomitant]
     Active Substance: ALBUTEROL
  3. REMICADE [Suspect]
     Active Substance: INFLIXIMAB
     Indication: CROHN^S DISEASE
     Route: 042
     Dates: start: 20090905, end: 20091015
  4. LEUKINE [Concomitant]
     Active Substance: SARGRAMOSTIM
     Indication: INFLAMMATORY BOWEL DISEASE
  5. LEUKINE [Concomitant]
     Active Substance: SARGRAMOSTIM
     Indication: INFLAMMATORY BOWEL DISEASE
     Dates: start: 20100222, end: 20100710
  6. IRON SULFATE [Concomitant]
     Active Substance: FERROUS SULFATE ANHYDROUS
  7. FLUCONAZOLE. [Concomitant]
     Active Substance: FLUCONAZOLE

REACTIONS (4)
  - Interleukin level decreased [Recovered/Resolved]
  - Bone marrow transplant [Recovered/Resolved]
  - Pseudomonas infection [Recovered/Resolved]
  - Complication associated with device [Recovered/Resolved]

NARRATIVE: CASE EVENT DATE: 20110203
